FAERS Safety Report 8630948 (Version 2)
Quarter: 2013Q1

REPORT INFORMATION
  Report Type: Spontaneous
  Country: US (occurrence: US)
  Receive Date: 20120622
  Receipt Date: 20130121
  Transmission Date: 20140127
  Serious: Yes (Other)
  Sender: FDA-Public Use
  Company Number: PHEH2012US012401

PATIENT
  Sex: Male
  Weight: 94.79 kg

DRUGS (7)
  1. GILENYA [Suspect]
     Indication: RELAPSING-REMITTING MULTIPLE SCLEROSIS
     Dosage: 0.5 MG, QD
     Route: 048
     Dates: start: 20111220
  2. DOLGIC PLUS [Concomitant]
     Dosage: 1 DF, PRN
  3. VOLTAREN ^CIBA-GEIGY^ [Concomitant]
     Dosage: UNK UKN, PRN
  4. ZANAFLEX [Concomitant]
     Dosage: UNK UKN, PRN
  5. LAMICTAL [Concomitant]
     Dosage: UNK UKN, UNK
  6. LOSARTAN [Concomitant]
     Dosage: UNK UKN, UNK
  7. PROVIGIL [Concomitant]
     Dosage: UNK UKN, PRN

REACTIONS (4)
  - Hemiparesis [Not Recovered/Not Resolved]
  - Visual acuity reduced [Unknown]
  - Dizziness [Unknown]
  - Drug ineffective [Unknown]
